FAERS Safety Report 6649768-4 (Version None)
Quarter: 2010Q1

REPORT INFORMATION
  Report Type: 
  Country: None (occurrence: None)
  Receive Date: 20100322
  Receipt Date: 20100315
  Transmission Date: 20100710
  Serious: Yes (Hospitalization)
  Sender: FDA-Public Use
  Company Number: 1000012489

PATIENT
  Age: 75 Year
  Sex: Female

DRUGS (1)
  1. THYROID TAB [Suspect]
     Indication: HYPOTHYROIDISM
     Dosage: 60 MG (60 MG, 1 IN 1 D) , ORAL
     Route: 048
     Dates: start: 19550101

REACTIONS (9)
  - ACUTE MYOCARDIAL INFARCTION [None]
  - ALOPECIA [None]
  - ARRHYTHMIA [None]
  - DEEP VEIN THROMBOSIS [None]
  - DYSPNOEA [None]
  - MYOCARDIAL INFARCTION [None]
  - PRODUCT FORMULATION ISSUE [None]
  - URTICARIA [None]
  - VENTRICULAR TACHYCARDIA [None]
